FAERS Safety Report 4846287-2 (Version None)
Quarter: 2005Q4

REPORT INFORMATION
  Report Type: 
  Country: None (occurrence: None)
  Receive Date: 20051206
  Receipt Date: 20051130
  Transmission Date: 20060501
  Serious: Yes (Hospitalization)
  Sender: FDA-Public Use
  Company Number: AU-ROCHE-426652

PATIENT
  Age: 9 Year
  Sex: Male
  Weight: 25 kg

DRUGS (10)
  1. CEFTRIAXONE SODIUM [Suspect]
     Indication: PROPHYLAXIS
     Route: 042
     Dates: start: 20031208, end: 20031210
  2. ERYTHROMYCIN [Suspect]
     Indication: PROPHYLAXIS
     Dosage: FORM: POWDER FOR INJECTION.
     Route: 042
     Dates: start: 20031208, end: 20031210
  3. PROPOFOL [Concomitant]
     Dates: end: 20031214
  4. MIDAZOLAM [Concomitant]
     Dates: end: 20031214
  5. ROCURONIUM [Concomitant]
     Dates: end: 20031214
  6. MORPHINE [Concomitant]
     Dates: end: 20031214
  7. PHENYTOIN [Concomitant]
  8. RANITIDINE [Concomitant]
  9. PARACETAMOL [Concomitant]
  10. MANNITOL [Concomitant]

REACTIONS (2)
  - RASH MACULO-PAPULAR [None]
  - STEVENS-JOHNSON SYNDROME [None]
